FAERS Safety Report 16581957 (Version 1)
Quarter: 2019Q3

REPORT INFORMATION
  Report Type: Spontaneous
  Country: US (occurrence: US)
  Receive Date: 20190603
  Receipt Date: 20190603
  Transmission Date: 20191004
  Serious: Yes (Life-Threatening, Hospitalization)
  Sender: FDA-Public Use
  Company Number: None

PATIENT
  Age: 78 Year
  Sex: Male
  Weight: 188 kg

DRUGS (1)
  1. WARFARIN [Suspect]
     Active Substance: WARFARIN
     Indication: ATRIAL FIBRILLATION
     Dates: start: 20161201, end: 20190530

REACTIONS (4)
  - Anaemia [None]
  - Gastric haemorrhage [None]
  - Hypotension [None]
  - International normalised ratio abnormal [None]

NARRATIVE: CASE EVENT DATE: 20190520
